FAERS Safety Report 11189511 (Version 9)
Quarter: 2019Q1

REPORT INFORMATION
  Report Type: Spontaneous
  Country: US (occurrence: US)
  Receive Date: 20150615
  Receipt Date: 20190201
  Transmission Date: 20190417
  Serious: Yes (Hospitalization, Other)
  Sender: FDA-Public Use
  Company Number: US-DSJP-DSU-2009-00716-1

PATIENT

DRUGS (5)
  1. BENICAR [Suspect]
     Active Substance: OLMESARTAN MEDOXOMIL
     Dosage: 10 MG, QD
     Route: 048
     Dates: start: 2009, end: 2010
  2. MULTIVITAMINS [Concomitant]
     Active Substance: VITAMINS
     Indication: VITAMIN SUPPLEMENTATION
     Dosage: QD    EVERY
     Route: 048
  3. ADVIL [Concomitant]
     Active Substance: IBUPROFEN
     Indication: PRODUCT USED FOR UNKNOWN INDICATION
     Dosage: AS REQUIRED    EVERY
     Route: 048
  4. BENICAR [Suspect]
     Active Substance: OLMESARTAN MEDOXOMIL
     Indication: HYPERTENSION
     Dosage: 20 MG, QD
     Route: 048
     Dates: start: 2002, end: 201001
  5. BENICAR HCT [Suspect]
     Active Substance: HYDROCHLOROTHIAZIDE\OLMESARTAN MEDOXOMIL
     Indication: HYPERTENSION
     Dosage: 20/12.5 MG, QD
     Dates: start: 2005, end: 2007

REACTIONS (13)
  - Sprue-like enteropathy [Recovered/Resolved]
  - Rectal haemorrhage [Unknown]
  - Campylobacter gastroenteritis [Unknown]
  - Hepatitis A antibody positive [Unknown]
  - Hypotension [Recovered/Resolved]
  - Diverticulum [Unknown]
  - Diverticulitis [Unknown]
  - Irritable bowel syndrome [Unknown]
  - Dizziness [Unknown]
  - Acute kidney injury [Recovered/Resolved]
  - Reactive gastropathy [Unknown]
  - Product administration error [Unknown]
  - Coeliac disease [Recovering/Resolving]

NARRATIVE: CASE EVENT DATE: 2003
